FAERS Safety Report 10334047 (Version 1)
Quarter: 2014Q3

REPORT INFORMATION
  Report Type: Spontaneous
  Country: ES (occurrence: None)
  Receive Date: 20140721
  Receipt Date: 20140721
  Transmission Date: 20150326
  Serious: Yes (Death, Other)
  Sender: FDA-Public Use
  Company Number: SYM-2014-23145

PATIENT
  Age: 19 Year
  Sex: Male

DRUGS (1)
  1. ELONTRIL [Suspect]
     Active Substance: BUPROPION HYDROCHLORIDE
     Indication: DEPRESSION
     Dates: start: 201405, end: 201405

REACTIONS (4)
  - Completed suicide [None]
  - Nervousness [None]
  - Asphyxia [None]
  - Mood altered [None]

NARRATIVE: CASE EVENT DATE: 20140609
